FAERS Safety Report 5965176-3 (Version None)
Quarter: 2008Q4

REPORT INFORMATION
  Report Type: 
  Country: None (occurrence: None)
  Receive Date: 20081125
  Receipt Date: 20081117
  Transmission Date: 20090506
  Serious: Yes (Hospitalization)
  Sender: FDA-Public Use
  Company Number: JP-GENENTECH-271856

PATIENT
  Sex: Male

DRUGS (6)
  1. RITUXAN [Suspect]
     Indication: LYMPHOMA
     Dosage: UNK
     Dates: start: 20060601, end: 20061101
  2. DOXORUBICIN HCL [Concomitant]
     Indication: LYMPHOMA
     Dosage: UNK
     Dates: start: 20060601, end: 20061101
  3. CYCLOPHOSPHAMIDE [Concomitant]
     Indication: LYMPHOMA
     Dosage: UNK
     Dates: start: 20060601, end: 20061101
  4. VINCRISTINE [Concomitant]
     Indication: LYMPHOMA
     Dosage: UNK
     Dates: start: 20060601, end: 20061101
  5. PREDNISOLONE [Concomitant]
     Indication: LYMPHOMA
     Dosage: UNK
     Dates: start: 20060601, end: 20061101
  6. PREDNISOLONE [Concomitant]
     Indication: PHOTOSENSITIVITY REACTION
     Dosage: UNK
     Route: 048
     Dates: start: 20080229, end: 20080603

REACTIONS (1)
  - HEPATITIS B [None]
